FAERS Safety Report 8297090-5 (Version None)
Quarter: 2012Q2

REPORT INFORMATION
  Report Type: 
  Country: None (occurrence: None)
  Receive Date: 20120416
  Receipt Date: 20120405
  Transmission Date: 20120825
  Serious: Yes (Other)
  Sender: FDA-Public Use
  Company Number: 2012SP018640

PATIENT
  Age: 59 Year
  Sex: Male

DRUGS (5)
  1. VICTRELIS [Suspect]
     Indication: HEPATITIS C
     Dosage: 200 MG;QID;PO
     Route: 048
     Dates: start: 20111205, end: 20120219
  2. PEG-INTRON [Suspect]
     Indication: PRODUCT USED FOR UNKNOWN INDICATION
     Dosage: 150 MCG
  3. ASPIRIN [Concomitant]
  4. REBETOL [Suspect]
     Indication: PRODUCT USED FOR UNKNOWN INDICATION
  5. BENICAR [Concomitant]

REACTIONS (6)
  - REFUSAL OF TREATMENT BY PATIENT [None]
  - DYSPHAGIA [None]
  - GOUT [None]
  - CEREBROVASCULAR ACCIDENT [None]
  - DRUG HYPERSENSITIVITY [None]
  - PHARYNGEAL ULCERATION [None]
